FAERS Safety Report 5342091-X (Version None)
Quarter: 2007Q2

REPORT INFORMATION
  Report Type: 
  Country: None (occurrence: None)
  Receive Date: 20070601
  Receipt Date: 20070521
  Transmission Date: 20071010
  Serious: Yes (Hospitalization)
  Sender: FDA-Public Use
  Company Number: JP-ASTRAZENECA-2007AP02060

PATIENT
  Age: 24317 Day
  Sex: Female

DRUGS (3)
  1. SEROQUEL [Suspect]
     Indication: SCHIZOPHRENIA
     Route: 048
     Dates: end: 20060918
  2. SEROQUEL [Suspect]
     Route: 048
     Dates: start: 20060918, end: 20070305
  3. AKINETON [Suspect]
     Indication: DYSKINESIA
     Route: 048
     Dates: start: 20060918, end: 20070305

REACTIONS (1)
  - ILEUS [None]
